FAERS Safety Report 5463282-3 (Version None)
Quarter: 2007Q3

REPORT INFORMATION
  Report Type: 
  Country: None (occurrence: None)
  Receive Date: 20070920
  Receipt Date: 20070919
  Transmission Date: 20080115
  Serious: Yes (Other)
  Sender: FDA-Public Use
  Company Number: A0680090A

PATIENT
  Age: 30 Year
  Sex: Female

DRUGS (5)
  1. ALLI [Suspect]
     Indication: DRUG USE FOR UNKNOWN INDICATION
  2. FIBERCHOICE WEIGHT MANAGEMENT SUGAR FREE STRAWBERRY [Suspect]
     Indication: DRUG USE FOR UNKNOWN INDICATION
     Route: 048
  3. ONE A DAY VITAMINS [Concomitant]
  4. CLONAZEPAM [Concomitant]
     Indication: DEPRESSION
  5. LEXAPRO [Concomitant]
     Indication: DEPRESSION

REACTIONS (7)
  - ANAL HAEMORRHAGE [None]
  - DIARRHOEA [None]
  - DRUG INEFFECTIVE [None]
  - FLATULENCE [None]
  - GASTROINTESTINAL DISORDER [None]
  - PROCTALGIA [None]
  - WEIGHT INCREASED [None]
